FAERS Safety Report 9632780 (Version 2)
Quarter: 2013Q4

REPORT INFORMATION
  Report Type: Spontaneous
  Country: US (occurrence: US)
  Receive Date: 20131018
  Receipt Date: 20131125
  Transmission Date: 20140711
  Serious: No
  Sender: FDA-Public Use
  Company Number: US-009507513-1309USA013496

PATIENT
  Age: 33 Year
  Sex: Female
  Weight: 144.67 kg

DRUGS (1)
  1. IMPLANON [Suspect]
     Dosage: UNK
     Route: 059
     Dates: start: 20090825

REACTIONS (4)
  - Incorrect drug administration duration [Not Recovered/Not Resolved]
  - Device difficult to use [Not Recovered/Not Resolved]
  - Medical device complication [Not Recovered/Not Resolved]
  - No adverse event [Unknown]
